FAERS Safety Report 10428461 (Version 1)
Quarter: 2014Q3

REPORT INFORMATION
  Report Type: Spontaneous
  Country: NL (occurrence: NL)
  Receive Date: 20140903
  Receipt Date: 20140903
  Transmission Date: 20150326
  Serious: Yes (Hospitalization)
  Sender: FDA-Public Use
  Company Number: PHHY2014NL110927

PATIENT
  Age: 42 Year
  Sex: Female

DRUGS (2)
  1. ETOMIDATE. [Concomitant]
     Active Substance: ETOMIDATE
  2. SUCCINYLCHOLINE CHLORIDE [Suspect]
     Active Substance: SUCCINYLCHOLINE CHLORIDE
     Indication: ELECTROCONVULSIVE THERAPY
     Dosage: 1.2 MG/KG

REACTIONS (2)
  - Ventricular fibrillation [Unknown]
  - Hyperkalaemia [Unknown]
